FAERS Safety Report 21773479 (Version 1)
Quarter: 2022Q4

REPORT INFORMATION
  Report Type: Report from Study
  Country: MX (occurrence: None)
  Receive Date: 20221223
  Receipt Date: 20221223
  Transmission Date: 20230113
  Serious: Yes (Death)
  Sender: FDA-Public Use
  Company Number: 2021A722804

PATIENT
  Age: 21489 Day
  Sex: Female
  Weight: 51 kg

DRUGS (1)
  1. TAGRISSO [Suspect]
     Active Substance: OSIMERTINIB
     Indication: Lung neoplasm malignant
     Route: 048
     Dates: start: 20200515

REACTIONS (15)
  - Death [Fatal]
  - Appetite disorder [Unknown]
  - Nausea [Not Recovered/Not Resolved]
  - Gastric disorder [Unknown]
  - Abdominal discomfort [Unknown]
  - Diarrhoea [Recovered/Resolved with Sequelae]
  - Dyspepsia [Unknown]
  - Inflammation [Unknown]
  - Crying [Unknown]
  - Weight decreased [Unknown]
  - Decreased appetite [Unknown]
  - Frustration tolerance decreased [Unknown]
  - Onychoclasis [Unknown]
  - Vomiting [Unknown]
  - Depressed mood [Unknown]

NARRATIVE: CASE EVENT DATE: 20200501
